FAERS Safety Report 4704441-4 (Version None)
Quarter: 2005Q2

REPORT INFORMATION
  Report Type: 
  Country: None (occurrence: None)
  Receive Date: 20050630
  Receipt Date: 20050630
  Transmission Date: 20051028
  Serious: Yes (Hospitalization)
  Sender: FDA-Public Use
  Company Number: None

PATIENT
  Age: 61 Year
  Sex: Female
  Weight: 48.5349 kg

DRUGS (7)
  1. TAXOL [Suspect]
     Indication: BREAST CANCER
     Dosage: 80 MG/M2 IV Q WK X 16
     Route: 042
     Dates: start: 20041227, end: 20050419
  2. CARBOPLATIN [Suspect]
     Indication: BREAST CANCER
     Dosage: AUC 6 IV, WKS 1,5,9, 13
     Route: 042
     Dates: start: 20041227, end: 20050329
  3. LASIX [Concomitant]
  4. PERCOCET [Concomitant]
  5. TEMAZEPAM [Concomitant]
  6. K-DUR 10 [Concomitant]
  7. KLONOPIN [Concomitant]

REACTIONS (7)
  - ANAEMIA [None]
  - ANKLE FRACTURE [None]
  - BONE PAIN [None]
  - DIZZINESS [None]
  - FALL [None]
  - MALAISE [None]
  - NAUSEA [None]
